FAERS Safety Report 11086723 (Version 6)
Quarter: 2016Q4

REPORT INFORMATION
  Report Type: Spontaneous
  Country: JP (occurrence: JP)
  Receive Date: 20150504
  Receipt Date: 20161230
  Transmission Date: 20170206
  Serious: Yes (Hospitalization, Disabling, Other)
  Sender: FDA-Public Use
  Company Number: JP-BAYER-2015-182901

PATIENT
  Age: 72 Year
  Sex: Male
  Weight: 70 kg

DRUGS (6)
  1. STIVARGA [Suspect]
     Active Substance: REGORAFENIB
     Indication: RECTAL CANCER
  2. PARIET [Concomitant]
     Active Substance: RABEPRAZOLE SODIUM
     Dosage: DAILY DOSE 10 MG
     Route: 048
     Dates: start: 20150108
  3. LEUCON [Concomitant]
     Dosage: DAILY DOSE 60 MG
     Route: 048
     Dates: start: 20140611
  4. NORVASC [Concomitant]
     Active Substance: AMLODIPINE BESYLATE
     Dosage: DAILY DOSE 5 MG
     Route: 048
     Dates: start: 20140619, end: 20150502
  5. STIVARGA [Suspect]
     Active Substance: REGORAFENIB
     Indication: COLON CANCER
     Dosage: 160 MG, QD (ONE CYCLE IS STIVARGA ON FOR 3 DAYS AND OFF FOR 1 WEEK)
     Route: 048
     Dates: start: 20150401, end: 20150421
  6. MIYA-BM [Concomitant]
     Active Substance: CLOSTRIDIUM BUTYRICUM SPORES STRAIN M-55
     Dosage: DAILY DOSE 6 DF
     Route: 048
     Dates: start: 20140108

REACTIONS (12)
  - Diarrhoea [None]
  - Hypoalbuminaemia [None]
  - Varices oesophageal [None]
  - Palmar-plantar erythrodysaesthesia syndrome [None]
  - Hepatic atrophy [Recovered/Resolved]
  - Abdominal distension [None]
  - Ascites [Recovered/Resolved]
  - Hepatic function abnormal [None]
  - Aspartate aminotransferase increased [None]
  - Alanine aminotransferase increased [None]
  - Hypertension [None]
  - Blood alkaline phosphatase increased [None]

NARRATIVE: CASE EVENT DATE: 2015
